FAERS Safety Report 5831849-6 (Version None)
Quarter: 2008Q3

REPORT INFORMATION
  Report Type: 
  Country: None (occurrence: None)
  Receive Date: 20080729
  Receipt Date: 20080718
  Transmission Date: 20090109
  Serious: Yes (Hospitalization)
  Sender: FDA-Public Use
  Company Number: 2008SP014874

PATIENT
  Age: 60 Year
  Sex: Male

DRUGS (4)
  1. PEG-INTRON [Suspect]
     Indication: HEPATITIS C
     Dosage: 80 MCG;QW;SC
     Route: 058
     Dates: start: 20070315, end: 20071209
  2. RIBAVIRIN [Suspect]
     Indication: HEPATITIS C
     Dosage: 1000 MG;QD;PO
     Route: 048
     Dates: start: 20070315, end: 20071209
  3. MOTILIUM [Concomitant]
  4. PK-MERZ [Concomitant]

REACTIONS (8)
  - BRONCHIECTASIS [None]
  - HALLUCINATION, AUDITORY [None]
  - HALLUCINATION, VISUAL [None]
  - HEADACHE [None]
  - PANCYTOPENIA [None]
  - PNEUMONIA HAEMOPHILUS [None]
  - PSYCHOTIC DISORDER [None]
  - SPUTUM DISCOLOURED [None]
